FAERS Safety Report 6180649-9 (Version None)
Quarter: 2009Q2

REPORT INFORMATION
  Report Type: 
  Country: None (occurrence: None)
  Receive Date: 20090506
  Receipt Date: 20090427
  Transmission Date: 20091009
  Serious: Yes (Disabling)
  Sender: FDA-Public Use
  Company Number: GB-ASTRAZENECA-2009GB00374

PATIENT
  Age: 28976 Day
  Sex: Female
  Weight: 64 kg

DRUGS (6)
  1. FELODIPINE [Suspect]
     Indication: CARDIAC DISORDER
     Dosage: 2.5MG
     Route: 048
     Dates: start: 20081222, end: 20081225
  2. FELODIPINE [Suspect]
     Indication: ATRIAL FIBRILLATION
     Dosage: 2.5MG
     Route: 048
     Dates: start: 20081222, end: 20081225
  3. LOSARTAN POSTASSIUM [Concomitant]
     Indication: BLOOD PRESSURE
     Dates: start: 20081201
  4. WARFARIN SODIUM [Concomitant]
     Indication: ATRIAL FIBRILLATION
     Dates: start: 20020101
  5. DIGOXIN [Concomitant]
     Dates: start: 20020101
  6. HYPROMELLOSE EYE DROPS [Concomitant]
     Route: 047

REACTIONS (10)
  - ERYTHEMA [None]
  - HEADACHE [None]
  - LEUKOCYTOCLASTIC VASCULITIS [None]
  - OEDEMA PERIPHERAL [None]
  - PRURITUS [None]
  - SCRATCH [None]
  - SKIN DISORDER [None]
  - SKIN WARM [None]
  - SWELLING [None]
  - TEMPERATURE INTOLERANCE [None]
